FAERS Safety Report 10052931 (Version 1)
Quarter: 2014Q2

REPORT INFORMATION
  Report Type: Spontaneous
  Country: FR (occurrence: FR)
  Receive Date: 20140402
  Receipt Date: 20140402
  Transmission Date: 20141212
  Serious: Yes (Other)
  Sender: FDA-Public Use
  Company Number: FR-BRISTOL-MYERS SQUIBB COMPANY-20566014

PATIENT
  Age: 34 Year
  Sex: Male

DRUGS (2)
  1. ABILIFY TABS 15 MG [Suspect]
     Indication: PSYCHOTIC DISORDER
     Route: 048
     Dates: start: 200806, end: 20131003
  2. RISPERIDONE [Suspect]
     Indication: PSYCHOTIC DISORDER
     Dosage: DOSE REDUCED TO 6MG DAILY
     Dates: start: 200806

REACTIONS (2)
  - Persecutory delusion [Recovering/Resolving]
  - Anxiety [Recovering/Resolving]
